FAERS Safety Report 7640957-9 (Version None)
Quarter: 2011Q3

REPORT INFORMATION
  Report Type: 
  Country: None (occurrence: None)
  Receive Date: 20110721
  Receipt Date: 20110711
  Transmission Date: 20111222
  Serious: Yes (Hospitalization)
  Sender: FDA-Public Use
  Company Number: 2011-FR-0018

PATIENT
  Age: 80 Year
  Sex: Female

DRUGS (7)
  1. SPECIAFOLDINE (FOLIC ACID) [Concomitant]
  2. ACEBUTOLOL (ACEBUTOLOL HYDROCHLORIE) [Concomitant]
  3. ALDACTONE (ALDACTONE) [Concomitant]
  4. DOLIPRANE (PHENACETYL) [Concomitant]
  5. FLECAINIDE ACETATE [Concomitant]
  6. RECTOGESIC (GLYCERYL TRINIGTRATE) [Suspect]
     Dosage: 375 MG X 1 PER ONCE, RECTAL
     Route: 054
     Dates: start: 20110516, end: 20110516
  7. ASPIRIN [Concomitant]

REACTIONS (6)
  - VERTIGO [None]
  - TREMOR [None]
  - PRESYNCOPE [None]
  - DYSSTASIA [None]
  - NECK PAIN [None]
  - DIZZINESS [None]
